FAERS Safety Report 17910784 (Version 7)
Quarter: 2021Q1

REPORT INFORMATION
  Report Type: Other
  Country: CA (occurrence: CA)
  Receive Date: 20200618
  Receipt Date: 20210104
  Transmission Date: 20210419
  Serious: Yes (Other)
  Sender: FDA-Public Use
  Company Number: CA-ROCHE-2490897

PATIENT
  Sex: Male

DRUGS (13)
  1. CALCIUM [Concomitant]
     Active Substance: CALCIUM
  2. ATORVASTATIN [Concomitant]
     Active Substance: ATORVASTATIN
     Dosage: EVERY OTHER DAY ;ONGOING: YES
  3. CHLOROQUINE. [Concomitant]
     Active Substance: CHLOROQUINE
  4. BIOTIN [Concomitant]
     Active Substance: BIOTIN
  5. FAMPYRA [Concomitant]
     Active Substance: DALFAMPRIDINE
  6. OCUVITE [Concomitant]
     Active Substance: VITAMINS
  7. DEXILANT [Concomitant]
     Active Substance: DEXLANSOPRAZOLE
     Dosage: EVERY OTHER DAY ;ONGOING: YES
  8. SOLIFENACIN [Concomitant]
     Active Substance: SOLIFENACIN
  9. COENZYME Q10 [Concomitant]
     Active Substance: DIETARY SUPPLEMENT\UBIDECARENONE
  10. SOLU?MEDROL [Concomitant]
     Active Substance: METHYLPREDNISOLONE SODIUM SUCCINATE
     Route: 042
  11. CANDESARTAN. [Concomitant]
     Active Substance: CANDESARTAN
  12. OCREVUS [Suspect]
     Active Substance: OCRELIZUMAB
     Indication: PRIMARY PROGRESSIVE MULTIPLE SCLEROSIS
     Dosage: 300 MG AT DAY 0 AND 14
     Route: 042
     Dates: start: 20190416
  13. BACLOFEN. [Concomitant]
     Active Substance: BACLOFEN

REACTIONS (7)
  - Visual impairment [Unknown]
  - Cellulitis [Recovering/Resolving]
  - Lymphocyte count decreased [Not Recovered/Not Resolved]
  - Tinnitus [Unknown]
  - Gait disturbance [Not Recovered/Not Resolved]
  - Gait disturbance [Unknown]
  - Drug ineffective [Unknown]
